FAERS Safety Report 15153633 (Version 1)
Quarter: 2018Q3

REPORT INFORMATION
  Report Type: Spontaneous
  Country: US (occurrence: US)
  Receive Date: 20180717
  Receipt Date: 20180717
  Transmission Date: 20181010
  Serious: No
  Sender: FDA-Public Use
  Company Number: US-GLAXOSMITHKLINE-US2018124876

PATIENT
  Sex: Male

DRUGS (1)
  1. BREO ELLIPTA [Suspect]
     Active Substance: FLUTICASONE FUROATE\VILANTEROL TRIFENATATE
     Indication: PRODUCT USED FOR UNKNOWN INDICATION
     Dosage: UNK UNK, SINGLE
     Route: 055
     Dates: start: 20180711

REACTIONS (7)
  - Dry mouth [Unknown]
  - Malaise [Unknown]
  - Tremor [Unknown]
  - Gastrointestinal sounds abnormal [Unknown]
  - Influenza like illness [Unknown]
  - Muscular weakness [Unknown]
  - Palpitations [Unknown]

NARRATIVE: CASE EVENT DATE: 20180711
